FAERS Safety Report 25024903 (Version 1)
Quarter: 2025Q1

REPORT INFORMATION
  Report Type: Spontaneous
  Country: US (occurrence: US)
  Receive Date: 20250228
  Receipt Date: 20250228
  Transmission Date: 20250409
  Serious: Yes (Hospitalization, Other)
  Sender: DR REDDYS
  Company Number: US-DRL-USA-USA/2025/02/003104

PATIENT
  Age: 12 Year
  Sex: Male

DRUGS (9)
  1. TERBINAFINE [Suspect]
     Active Substance: TERBINAFINE
     Indication: Scedosporium infection
  2. TERBINAFINE [Suspect]
     Active Substance: TERBINAFINE
     Indication: Arthritis fungal
  3. TERBINAFINE [Suspect]
     Active Substance: TERBINAFINE
     Indication: Osteomyelitis
  4. VORICONAZOLE [Concomitant]
     Active Substance: VORICONAZOLE
     Indication: Scedosporium infection
  5. VORICONAZOLE [Concomitant]
     Active Substance: VORICONAZOLE
     Indication: Arthritis fungal
  6. VORICONAZOLE [Concomitant]
     Active Substance: VORICONAZOLE
     Indication: Osteomyelitis
  7. CASPOFUNGIN [Concomitant]
     Active Substance: CASPOFUNGIN
     Indication: Scedosporium infection
  8. CASPOFUNGIN [Concomitant]
     Active Substance: CASPOFUNGIN
     Indication: Arthritis fungal
  9. CASPOFUNGIN [Concomitant]
     Active Substance: CASPOFUNGIN
     Indication: Osteomyelitis

REACTIONS (2)
  - Disease progression [Recovered/Resolved]
  - Drug ineffective for unapproved indication [Unknown]
